FAERS Safety Report 20382093 (Version 1)
Quarter: 2022Q1

REPORT INFORMATION
  Report Type: Other
  Country: CH (occurrence: CH)
  Receive Date: 20220127
  Receipt Date: 20220127
  Transmission Date: 20220423
  Serious: Yes (Other)
  Sender: FDA-Public Use
  Company Number: CH-ASTELLAS-2022US002263

PATIENT
  Age: 68 Year
  Sex: Male

DRUGS (2)
  1. PRADIF T [Suspect]
     Active Substance: TAMSULOSIN HYDROCHLORIDE
     Indication: Product used for unknown indication
     Dosage: 1 DF, QD
     Route: 048
     Dates: start: 2021, end: 2021
  2. PRADIF T [Suspect]
     Active Substance: TAMSULOSIN HYDROCHLORIDE
     Dosage: 1 DF, QD
     Route: 048
     Dates: end: 2021

REACTIONS (2)
  - Arteriospasm coronary [Unknown]
  - Prinzmetal angina [Unknown]

NARRATIVE: CASE EVENT DATE: 20210101
